FAERS Safety Report 25040606 (Version 1)
Quarter: 2025Q1

REPORT INFORMATION
  Report Type: Spontaneous
  Country: AT (occurrence: AT)
  Receive Date: 20250305
  Receipt Date: 20250305
  Transmission Date: 20250408
  Serious: Yes (Death, Other)
  Sender: BRISTOL-MYERS SQUIBB COMPANY
  Company Number: AT-BRISTOL-MYERS SQUIBB COMPANY-2025-032728

PATIENT
  Age: 65 Year
  Sex: Female

DRUGS (5)
  1. OPDIVO [Suspect]
     Active Substance: NIVOLUMAB
     Indication: Clear cell renal cell carcinoma
     Route: 042
     Dates: start: 20181031, end: 202409
  2. PEMBROLIZUMAB [Suspect]
     Active Substance: PEMBROLIZUMAB
     Indication: Clear cell renal cell carcinoma
  3. PAZOPANIB [Suspect]
     Active Substance: PAZOPANIB
     Indication: Clear cell renal cell carcinoma
  4. SUNITINIB [Suspect]
     Active Substance: SUNITINIB
     Indication: Clear cell renal cell carcinoma
  5. SORAFENIB [Suspect]
     Active Substance: SORAFENIB
     Indication: Clear cell renal cell carcinoma

REACTIONS (1)
  - Death [Fatal]

NARRATIVE: CASE EVENT DATE: 20240901
